FAERS Safety Report 8276810-X (Version None)
Quarter: 2012Q2

REPORT INFORMATION
  Report Type: 
  Country: None (occurrence: None)
  Receive Date: 20120412
  Receipt Date: 20120406
  Transmission Date: 20120825
  Serious: Yes (Other)
  Sender: FDA-Public Use
  Company Number: CN-PFIZER INC-2012088809

PATIENT
  Age: 71 Year
  Sex: Female

DRUGS (5)
  1. ADALAT [Concomitant]
  2. METOPROLOL TARTRATE [Concomitant]
  3. PLAVIX [Concomitant]
  4. LIPITOR [Suspect]
     Indication: ANGINA PECTORIS
     Dosage: 20 MG, UNK
     Route: 048
     Dates: start: 20120313, end: 20120404
  5. ACETYLSALICYLIC ACID [Concomitant]

REACTIONS (21)
  - GENERALISED OEDEMA [None]
  - BLOOD UREA INCREASED [None]
  - DYSPNOEA [None]
  - BLOOD OSMOLARITY DECREASED [None]
  - BLOOD LACTATE DEHYDROGENASE INCREASED [None]
  - COMA [None]
  - BLOOD MAGNESIUM DECREASED [None]
  - BLOOD TRIGLYCERIDES INCREASED [None]
  - ASPARTATE AMINOTRANSFERASE INCREASED [None]
  - BLOOD PRESSURE FLUCTUATION [None]
  - BLOOD SODIUM DECREASED [None]
  - BLOOD CALCIUM DECREASED [None]
  - ALBUMIN GLOBULIN RATIO DECREASED [None]
  - BLOOD PHOSPHORUS INCREASED [None]
  - MUSCLE ENZYME INCREASED [None]
  - ALPHA HYDROXYBUTYRATE DEHYDROGENASE INCREASED [None]
  - RHABDOMYOLYSIS [None]
  - ALANINE AMINOTRANSFERASE INCREASED [None]
  - BLOOD POTASSIUM INCREASED [None]
  - CHEST PAIN [None]
  - CARBON DIOXIDE ABNORMAL [None]
